FAERS Safety Report 18980938 (Version 1)
Quarter: 2021Q1

REPORT INFORMATION
  Report Type: Spontaneous
  Country: US (occurrence: US)
  Receive Date: 20210305
  Receipt Date: 20210305
  Transmission Date: 20210420
  Serious: Yes (Hospitalization)
  Sender: FDA-Public Use
  Company Number: None

PATIENT
  Sex: Female

DRUGS (10)
  1. FAMOTIDINE. [Concomitant]
     Active Substance: FAMOTIDINE
  2. MULTIPLE VIT [Concomitant]
  3. BIOTIN [Concomitant]
     Active Substance: BIOTIN
  4. FLUTICASONE. [Concomitant]
     Active Substance: FLUTICASONE
  5. RALOXIFENE. [Concomitant]
     Active Substance: RALOXIFENE
  6. ANORO ELLIPT [Concomitant]
  7. VITAMIN D3 [Concomitant]
     Active Substance: CHOLECALCIFEROL
  8. ESBRIET [Suspect]
     Active Substance: PIRFENIDONE
     Indication: INTERSTITIAL LUNG DISEASE
     Route: 048
     Dates: start: 20200407
  9. ASPIRIN. [Concomitant]
     Active Substance: ASPIRIN
  10. METOPROL TAR [Concomitant]

REACTIONS (1)
  - Lung transplant [None]
